FAERS Safety Report 25563796 (Version 4)
Quarter: 2025Q4

REPORT INFORMATION
  Report Type: Spontaneous
  Country: US (occurrence: US)
  Receive Date: 20250716
  Receipt Date: 20251009
  Transmission Date: 20260118
  Serious: Yes (Hospitalization)
  Sender: JOHNSON AND JOHNSON
  Company Number: US-JNJFOC-20250710847

PATIENT
  Age: 68 Year
  Sex: Male

DRUGS (2)
  1. TALVEY [Suspect]
     Active Substance: TALQUETAMAB-TGVS
     Indication: Plasma cell myeloma
     Dosage: 1 EVERY 48 HOURS FOR 3 DAYS
     Dates: start: 20250602
  2. TALVEY [Suspect]
     Active Substance: TALQUETAMAB-TGVS
     Dosage: THERAPY END DATE: 09-JUN-2025
     Dates: start: 20250605

REACTIONS (3)
  - Platelet count decreased [Unknown]
  - Full blood count abnormal [Unknown]
  - Loss of personal independence in daily activities [Unknown]

NARRATIVE: CASE EVENT DATE: 20250101
